FAERS Safety Report 15964018 (Version 4)
Quarter: 2019Q2

REPORT INFORMATION
  Report Type: Report from Study
  Country: US (occurrence: US)
  Receive Date: 20190214
  Receipt Date: 20190530
  Transmission Date: 20190711
  Serious: Yes (Hospitalization, Other)
  Sender: FDA-Public Use
  Company Number: US-ACTELION-A-US2019-184768

PATIENT
  Age: 1 Year
  Sex: Male

DRUGS (9)
  1. REVATIO [Concomitant]
     Active Substance: SILDENAFIL CITRATE
     Dosage: 10 MG, QHRS
  2. BOSENTAN TABLET 32 MG PED US [Suspect]
     Active Substance: BOSENTAN
     Indication: PULMONARY HYPERTENSION
     Dosage: 32 MG, UNK
     Route: 048
     Dates: start: 20180907
  3. ASPRIN [Concomitant]
     Active Substance: ASPIRIN
     Dosage: 40 MG, QD
     Route: 048
     Dates: start: 20180510
  4. NEXIUM [Concomitant]
     Active Substance: ESOMEPRAZOLE MAGNESIUM
     Dosage: 5 MG, BID
     Route: 048
     Dates: start: 20180329
  5. REVATIO [Concomitant]
     Active Substance: SILDENAFIL CITRATE
     Dosage: 1.8 ML, TID
     Route: 048
     Dates: start: 20180525
  6. EPANED [Concomitant]
     Active Substance: ENALAPRIL MALEATE
     Dosage: 9 MG
  7. DIURIL [Concomitant]
     Active Substance: CHLOROTHIAZIDE
     Dosage: 95 MG, BID
     Route: 048
  8. EPANED [Concomitant]
     Active Substance: ENALAPRIL MALEATE
     Dosage: 0.8 ML, BID
     Route: 048
     Dates: start: 20180315
  9. BOSENTAN TABLET 32 MG PED US [Suspect]
     Active Substance: BOSENTAN
     Dosage: 16 MG, BID
     Route: 048

REACTIONS (4)
  - Ear infection [Recovered/Resolved]
  - Cardiac operation [Recovered/Resolved]
  - Surgery [Unknown]
  - Liver function test increased [Unknown]

NARRATIVE: CASE EVENT DATE: 20190425
